FAERS Safety Report 9066888 (Version 1)
Quarter: 2013Q1

REPORT INFORMATION
  Report Type: Report from Study
  Country: US (occurrence: US)
  Receive Date: 20130131
  Receipt Date: 20130131
  Transmission Date: 20140127
  Serious: No
  Sender: FDA-Public Use
  Company Number: US-ABBOTT-12P-163-1007889-00

PATIENT
  Age: 72 Year
  Sex: Female

DRUGS (13)
  1. HUMIRA [Suspect]
     Indication: PSORIASIS
     Dosage: LOADING DOSE
     Dates: start: 20121031, end: 20121031
  2. HUMIRA [Suspect]
     Dosage: LOADING DOSE
     Dates: start: 20121107, end: 20121107
  3. HUMIRA [Suspect]
     Dates: end: 20121121
  4. METFORMIN [Concomitant]
     Indication: DIABETES MELLITUS
  5. BLOOD PRESSURE PILL [Concomitant]
     Indication: HYPERTENSION
  6. SYNTHROID [Concomitant]
     Indication: HYPOTHYROIDISM
  7. ASPIRIN [Concomitant]
     Indication: CORONARY ARTERY BYPASS
     Dosage: IN THE MORNING
  8. FISH OIL [Concomitant]
     Indication: PRODUCT USED FOR UNKNOWN INDICATION
  9. VITAMIN D [Concomitant]
     Indication: PRODUCT USED FOR UNKNOWN INDICATION
  10. OCUVITE [Concomitant]
     Indication: PRODUCT USED FOR UNKNOWN INDICATION
  11. PAIN PILL [Concomitant]
     Indication: ARTHRALGIA
     Dosage: 1 TABLET AT BREAKFAST, 1 AT DINNER
  12. CHOLESTEROL PILL [Concomitant]
     Indication: BLOOD CHOLESTEROL INCREASED
     Dosage: AT NIGHT
  13. UNKNOWN SJOGREN^S MEDICATION [Concomitant]
     Indication: SJOGREN^S SYNDROME
     Dosage: 2 IN THE MORNING, 2 IN THE EVENING

REACTIONS (9)
  - Dry skin [Not Recovered/Not Resolved]
  - Drug ineffective [Not Recovered/Not Resolved]
  - Psoriasis [Not Recovered/Not Resolved]
  - Skin burning sensation [Unknown]
  - Skin discolouration [Unknown]
  - Pruritus [Unknown]
  - Pain of skin [Unknown]
  - Pneumonia [Unknown]
  - Cough [Unknown]
